FAERS Safety Report 5489706-3 (Version None)
Quarter: 2007Q4

REPORT INFORMATION
  Report Type: 
  Country: None (occurrence: None)
  Receive Date: 20071010
  Receipt Date: 20070207
  Transmission Date: 20080405
  Serious: Yes (Other)
  Sender: FDA-Public Use
  Company Number: 2007SP002431

PATIENT
  Age: 39 Year
  Sex: Female
  Weight: 117.9352 kg

DRUGS (5)
  1. PROVENTIL-HFA [Suspect]
     Indication: SARCOIDOSIS
     Dosage: PO
     Route: 048
  2. VITAMIN B-12 [Concomitant]
  3. VITAMINS [Concomitant]
  4. SYNTHROID [Concomitant]
  5. ALBUTEROL [Concomitant]

REACTIONS (2)
  - BRONCHOSPASM [None]
  - HYPERSENSITIVITY [None]
